FAERS Safety Report 10253634 (Version 5)
Quarter: 2014Q3

REPORT INFORMATION
  Report Type: Report from Study
  Country: GB (occurrence: GB)
  Receive Date: 20140623
  Receipt Date: 20140918
  Transmission Date: 20150326
  Serious: Yes (Life-Threatening, Hospitalization)
  Sender: FDA-Public Use
  Company Number: GB-JNJFOC-20140614613

PATIENT
  Age: 71 Year
  Sex: Male
  Weight: 84.05 kg

DRUGS (11)
  1. ALLOPURINOL. [Concomitant]
     Active Substance: ALLOPURINOL
     Indication: GOUT
     Route: 048
  2. TRAVOPROST [Concomitant]
     Active Substance: TRAVOPROST
  3. IBRUTINIB [Suspect]
     Active Substance: IBRUTINIB
     Indication: CHRONIC LYMPHOCYTIC LEUKAEMIA
     Route: 048
     Dates: start: 20140603, end: 20140608
  4. LANSOPRAZOLE. [Concomitant]
     Active Substance: LANSOPRAZOLE
     Indication: GASTROINTESTINAL DISORDER
     Route: 048
  5. CANDESARTAN [Concomitant]
     Active Substance: CANDESARTAN
     Indication: HYPERTENSION
     Route: 048
  6. EZETIMIBE. [Concomitant]
     Active Substance: EZETIMIBE
     Indication: BLOOD CHOLESTEROL INCREASED
     Route: 048
  7. ACICLOVIR [Concomitant]
     Active Substance: ACYCLOVIR
     Indication: ANTIVIRAL PROPHYLAXIS
     Route: 048
  8. MOMETASONE FUROATE. [Concomitant]
     Active Substance: MOMETASONE FUROATE
  9. METOCLOPRAMIDE. [Concomitant]
     Active Substance: METOCLOPRAMIDE
     Indication: ANTIEMETIC SUPPORTIVE CARE
     Route: 048
  10. IBRUTINIB [Suspect]
     Active Substance: IBRUTINIB
     Indication: LYMPHOCYTIC LYMPHOMA
     Route: 048
     Dates: start: 20140603, end: 20140608
  11. NASONEX [Concomitant]
     Active Substance: MOMETASONE FUROATE
     Indication: SEASONAL ALLERGY
     Route: 045

REACTIONS (1)
  - Chest pain [Recovered/Resolved]

NARRATIVE: CASE EVENT DATE: 20140618
